FAERS Safety Report 6354469-6 (Version None)
Quarter: 2009Q3

REPORT INFORMATION
  Report Type: 
  Country: None (occurrence: None)
  Receive Date: 20090910
  Receipt Date: 20090826
  Transmission Date: 20100115
  Serious: Yes (Other)
  Sender: FDA-Public Use
  Company Number: IND1-JO-2009-0022

PATIENT
  Age: 73 Year
  Sex: Male

DRUGS (2)
  1. INDOCIN [Suspect]
     Indication: DRUG USE FOR UNKNOWN INDICATION
     Dosage: (2-3 CAPSULES, 25MG) PER ORAL
     Route: 048
  2. DICLOFENAC [Suspect]
     Indication: BACK PAIN

REACTIONS (12)
  - ASTHENIA [None]
  - BLOOD UREA INCREASED [None]
  - COLONIC POLYP [None]
  - FIBROSIS [None]
  - HAEMOGLOBIN DECREASED [None]
  - INTESTINAL DIAPHRAGM DISEASE [None]
  - MELAENA [None]
  - PALLOR [None]
  - PROTEIN TOTAL DECREASED [None]
  - SMALL INTESTINAL HAEMORRHAGE [None]
  - SYNCOPE [None]
  - VOMITING [None]
